FAERS Safety Report 7686975-6 (Version None)
Quarter: 2011Q3

REPORT INFORMATION
  Report Type: 
  Country: None (occurrence: None)
  Receive Date: 20110816
  Receipt Date: 20110808
  Transmission Date: 20111222
  Serious: Yes (Death)
  Sender: FDA-Public Use
  Company Number: US-CELGENEUS-163-21880-11062027

PATIENT
  Sex: Male

DRUGS (11)
  1. COUMADIN [Concomitant]
     Route: 065
  2. ENALAPRIL MALEATE [Concomitant]
     Route: 065
  3. JANUVIA [Concomitant]
     Route: 065
  4. REVLIMID [Suspect]
     Dosage: 15-10MG
     Route: 048
     Dates: start: 20100601
  5. BUMETANIDE [Concomitant]
     Route: 065
  6. REVLIMID [Suspect]
     Dosage: 15 MILLIGRAM
     Route: 048
     Dates: start: 20110509, end: 20110101
  7. DIGOXIN [Concomitant]
     Route: 065
  8. GLYBURIDE [Concomitant]
     Route: 065
  9. AMLODIPINE BESYLATE [Concomitant]
     Route: 065
  10. OMEPRAZOLE [Concomitant]
     Route: 065
  11. REVLIMID [Suspect]
     Dosage: 10
     Route: 048
     Dates: start: 20080501

REACTIONS (2)
  - CARDIO-RESPIRATORY ARREST [None]
  - MULTIPLE MYELOMA [None]
